FAERS Safety Report 9193981 (Version 2)
Quarter: 2013Q3

REPORT INFORMATION
  Report Type: Report from Study
  Country: MX (occurrence: MX)
  Receive Date: 20130327
  Receipt Date: 20130906
  Transmission Date: 20140515
  Serious: Yes (Death, Hospitalization, Other)
  Sender: FDA-Public Use
  Company Number: PHHY2013MX029886

PATIENT
  Age: 64 Year
  Sex: Male

DRUGS (3)
  1. EXFORGE HCT [Suspect]
     Indication: HYPERTENSION
     Dosage: 0.5 DF, DAILY(320 MG VALS/10 MG AMLO/5MG HYDR
     Dates: start: 201107
  2. EXFORGE HCT [Suspect]
     Dosage: 1 DF(320 MG VALS/10 MG AMLO/12.5MG HYDR), DAILY
     Route: 048
     Dates: start: 201208
  3. LYRICA [Concomitant]
     Indication: PHANTOM PAIN
     Dosage: 3 UKN, DAILY
     Dates: start: 201208

REACTIONS (3)
  - Neoplasm malignant [Fatal]
  - Sarcoma [Not Recovered/Not Resolved]
  - Wrong technique in drug usage process [Unknown]
